FAERS Safety Report 6929993-5 (Version None)
Quarter: 2010Q3

REPORT INFORMATION
  Report Type: 
  Country: None (occurrence: None)
  Receive Date: 20100818
  Receipt Date: 20100811
  Transmission Date: 20110219
  Serious: Yes (Other)
  Sender: FDA-Public Use
  Company Number: JP-PFIZER INC-2010097687

PATIENT
  Age: 68 Year
  Sex: Female

DRUGS (1)
  1. SOLU-CORTEF [Suspect]
     Dosage: 250 MG/DAY

REACTIONS (1)
  - WHEEZING [None]
